FAERS Safety Report 16750489 (Version 1)
Quarter: 2019Q3

REPORT INFORMATION
  Report Type: Spontaneous
  Country: US (occurrence: US)
  Receive Date: 20190828
  Receipt Date: 20190828
  Transmission Date: 20191005
  Serious: Yes (Other)
  Sender: FDA-Public Use
  Company Number: US-PFIZER INC-2019368807

PATIENT

DRUGS (2)
  1. LORBRENA [Suspect]
     Active Substance: LORLATINIB
     Dosage: 75 MG, UNK
  2. LORBRENA [Suspect]
     Active Substance: LORLATINIB
     Dosage: 100 MG, CYCLIC

REACTIONS (1)
  - Seizure [Unknown]
